FAERS Safety Report 8349242-3 (Version None)
Quarter: 2012Q2

REPORT INFORMATION
  Report Type: 
  Country: None (occurrence: None)
  Receive Date: 20120510
  Receipt Date: 20120503
  Transmission Date: 20120825
  Serious: Yes (Other)
  Sender: FDA-Public Use
  Company Number: PHHY2012VE039292

PATIENT
  Sex: Female

DRUGS (1)
  1. ZOLEDRONOC ACID [Suspect]
     Indication: OSTEOPOROSIS
     Dosage: 5 MG ONCE A YEAR
     Route: 042
     Dates: start: 20120426

REACTIONS (7)
  - NAUSEA [None]
  - DISORIENTATION [None]
  - HEADACHE [None]
  - BONE PAIN [None]
  - AMNESIA [None]
  - DIZZINESS [None]
  - HYPERTENSION [None]
